FAERS Safety Report 8446001-8 (Version None)
Quarter: 2012Q2

REPORT INFORMATION
  Report Type: 
  Country: None (occurrence: None)
  Receive Date: 20120618
  Receipt Date: 20120607
  Transmission Date: 20120825
  Serious: Yes (Other)
  Sender: FDA-Public Use
  Company Number: US-ASTRAZENECA-2011SE35551

PATIENT
  Age: 64 Year
  Sex: Female

DRUGS (2)
  1. KADIAN [Suspect]
     Route: 065
  2. CRESTOR [Suspect]
     Indication: BLOOD CHOLESTEROL ABNORMAL
     Route: 048

REACTIONS (4)
  - HYPOACUSIS [None]
  - INFLUENZA [None]
  - HAEMATEMESIS [None]
  - MALAISE [None]
